FAERS Safety Report 6971742-9 (Version None)
Quarter: 2010Q3

REPORT INFORMATION
  Report Type: 
  Country: None (occurrence: None)
  Receive Date: 20100908
  Receipt Date: 20100902
  Transmission Date: 20110219
  Serious: Yes (Hospitalization)
  Sender: FDA-Public Use
  Company Number: BE-ABBOTT-10P-013-0667440-00

PATIENT
  Sex: Male
  Weight: 98 kg

DRUGS (1)
  1. LEUPROLIDE ACETATE [Suspect]
     Indication: PROSTATE CANCER
     Route: 030
     Dates: start: 20090923, end: 20100602

REACTIONS (2)
  - LUNG NEOPLASM MALIGNANT [None]
  - PNEUMOTHORAX [None]
